FAERS Safety Report 4469445-8 (Version None)
Quarter: 2004Q4

REPORT INFORMATION
  Report Type: 
  Country: None (occurrence: None)
  Receive Date: 20041005
  Receipt Date: 20040921
  Transmission Date: 20050328
  Serious: Yes (Other)
  Sender: FDA-Public Use
  Company Number: US013819

PATIENT
  Age: 16 Month
  Sex: Female

DRUGS (1)
  1. ACTIQ [Suspect]
     Dosage: 200 UG ONCE BUCCAL
     Route: 002
     Dates: start: 20040915, end: 20040915

REACTIONS (3)
  - ACCIDENTAL EXPOSURE [None]
  - MEDICATION ERROR [None]
  - SOMNOLENCE [None]
